FAERS Safety Report 23605300 (Version 4)
Quarter: 2024Q1

REPORT INFORMATION
  Report Type: Spontaneous
  Country: IT (occurrence: IT)
  Receive Date: 20240307
  Receipt Date: 20240328
  Transmission Date: 20240410
  Serious: Yes (Hospitalization, Other)
  Sender: FDA-Public Use
  Company Number: IT-LAT-24238377462Ov

PATIENT
  Age: 12 Year
  Sex: Female
  Weight: 25 kg

DRUGS (5)
  1. STELARA [Suspect]
     Active Substance: USTEKINUMAB
     Indication: Crohn^s disease
     Dosage: 3 CONSECUTIVE WEEKLY SUBCUTANEOUS DOSES OF 2MG/KG USTEKINUMAB, EQUIVALENT TO A SINGLE INTRAVENOUS DO
     Route: 058
  2. ADALIMUMAB [Suspect]
     Active Substance: ADALIMUMAB\ISOPROPYL ALCOHOL
     Indication: Arthritis
     Route: 058
  3. ADALIMUMAB [Suspect]
     Active Substance: ADALIMUMAB\ISOPROPYL ALCOHOL
     Indication: Crohn^s disease
     Route: 058
  4. ADALIMUMAB [Suspect]
     Active Substance: ADALIMUMAB\ISOPROPYL ALCOHOL
     Route: 058
  5. METHOTREXATE [Suspect]
     Active Substance: METHOTREXATE
     Indication: Crohn^s disease
     Route: 058

REACTIONS (8)
  - Poncet^s disease [Recovered/Resolved]
  - Enterovirus infection [Recovered/Resolved]
  - Parainfluenzae virus infection [Recovered/Resolved]
  - Strongyloidiasis [Recovered/Resolved]
  - Candida infection [Recovered/Resolved]
  - Acid fast bacilli infection [Recovered/Resolved]
  - Pulmonary tuberculosis [Recovered/Resolved]
  - Off label use [Unknown]

NARRATIVE: CASE EVENT DATE: 20180101
